FAERS Safety Report 15901086 (Version 1)
Quarter: 2019Q1

REPORT INFORMATION
  Report Type: Spontaneous
  Country: US (occurrence: US)
  Receive Date: 20190131
  Receipt Date: 20190131
  Transmission Date: 20190417
  Serious: Yes (Disabling)
  Sender: FDA-Public Use
  Company Number: None

PATIENT
  Sex: Female

DRUGS (1)
  1. IMPLANON [Suspect]
     Active Substance: ETONOGESTREL

REACTIONS (9)
  - Trichorrhexis [None]
  - Implantation complication [None]
  - Alopecia [None]
  - Condition aggravated [None]
  - Anxiety [None]
  - Weight increased [None]
  - Lactation disorder [None]
  - Depression [None]
  - Headache [None]

NARRATIVE: CASE EVENT DATE: 20170120
